FAERS Safety Report 9555434 (Version 1)
Quarter: 2013Q3

REPORT INFORMATION
  Report Type: Spontaneous
  Country: US (occurrence: None)
  Receive Date: 20130925
  Receipt Date: 20130925
  Transmission Date: 20140515
  Serious: Yes (Hospitalization)
  Sender: FDA-Public Use
  Company Number: None

PATIENT
  Age: 64 Year
  Sex: Male
  Weight: 83 kg

DRUGS (1)
  1. SULFAMETHOXAZOLE-TMP DS [Suspect]
     Route: 048
     Dates: start: 20130717, end: 20130917

REACTIONS (6)
  - Rash maculo-papular [None]
  - Pallor [None]
  - Skin exfoliation [None]
  - Erythema [None]
  - Purpura [None]
  - Rash generalised [None]
